FAERS Safety Report 18833371 (Version 1)
Quarter: 2021Q1

REPORT INFORMATION
  Report Type: Spontaneous
  Country: US (occurrence: US)
  Receive Date: 20210203
  Receipt Date: 20210203
  Transmission Date: 20210419
  Serious: Yes (Hospitalization)
  Sender: FDA-Public Use
  Company Number: US-MYLANLABS-2021M1006820

PATIENT
  Age: 14 Year
  Sex: Male

DRUGS (3)
  1. MORPHINE [Suspect]
     Active Substance: MORPHINE
     Indication: PORPHYRIA ACUTE
     Dosage: UNK
     Route: 065
  2. PROMETHAZINE [Suspect]
     Active Substance: PROMETHAZINE HYDROCHLORIDE
     Indication: PORPHYRIA ACUTE
     Dosage: UNK
     Route: 065
  3. GLUCOSE [Suspect]
     Active Substance: DEXTROSE
     Indication: PORPHYRIA ACUTE
     Dosage: 1 LITER, Q8H
     Route: 042

REACTIONS (1)
  - Drug ineffective [Unknown]
